FAERS Safety Report 7946545-9 (Version None)
Quarter: 2011Q4

REPORT INFORMATION
  Report Type: 
  Country: None (occurrence: None)
  Receive Date: 20111129
  Receipt Date: 20111115
  Transmission Date: 20120403
  Serious: Yes (Hospitalization, Other)
  Sender: FDA-Public Use
  Company Number: US-BAYER-201034584NA

PATIENT
  Age: 26 Year
  Sex: Female
  Weight: 115.65 kg

DRUGS (20)
  1. INSULIN [Concomitant]
     Indication: DIABETES MELLITUS
     Dosage: UNK
     Dates: start: 20070101
  2. LEVAQUIN [Concomitant]
     Indication: COUGH
     Dosage: UNK
     Dates: start: 20080218
  3. LANTUS [Concomitant]
  4. METFORMIN HCL [Concomitant]
     Indication: DIABETES MELLITUS
     Dosage: UNK
     Dates: start: 20010101
  5. COLACE [Concomitant]
  6. DILANTIN [Concomitant]
     Dosage: UNK
     Dates: start: 20070101
  7. ZITHROMAX [Concomitant]
     Indication: EAR INFECTION
     Dosage: 500 MG, QD
  8. VITAMIN B COMPLEX COX [Concomitant]
  9. LEVAQUIN [Concomitant]
     Indication: EAR PAIN
  10. IBUPROFEN [Concomitant]
     Dosage: UNK
     Dates: start: 20080218
  11. PREVACID [Concomitant]
  12. LISINOPRIL [Concomitant]
     Indication: HYPERTENSION
     Dosage: UNK
     Dates: start: 20070101
  13. ZOCOR [Concomitant]
     Indication: BLOOD CHOLESTEROL INCREASED
     Dosage: UNK
     Dates: start: 20070101
  14. GLUCOPHAGE [Concomitant]
  15. YAZ [Suspect]
     Indication: PRODUCT USED FOR UNKNOWN INDICATION
     Route: 048
     Dates: start: 20061201, end: 20070201
  16. METOPROLOL TARTRATE [Concomitant]
     Indication: DIABETES MELLITUS
     Dosage: UNK
     Dates: start: 20010101
  17. NOVOLIN N [Concomitant]
     Dosage: 100 U/ML, UNK
  18. AMARYL [Concomitant]
  19. IRON [IRON] [Concomitant]
  20. NOVOLOG [Concomitant]
     Dosage: 100 U/ML, UNK

REACTIONS (2)
  - INTRACRANIAL ANEURYSM [None]
  - HAEMORRHAGIC STROKE [None]
